FAERS Safety Report 21661216 (Version 1)
Quarter: 2022Q4

REPORT INFORMATION
  Report Type: Spontaneous
  Country: RU (occurrence: RU)
  Receive Date: 20221130
  Receipt Date: 20221130
  Transmission Date: 20230112
  Serious: Yes (Life-Threatening, Hospitalization)
  Sender: FDA-Public Use
  Company Number: RU-STERISCIENCE B.V.-2022-ST-000073

PATIENT
  Age: 8 Month
  Sex: Male

DRUGS (7)
  1. MIDAZOLAM [Suspect]
     Active Substance: MIDAZOLAM
     Indication: Anaesthetic premedication
     Dosage: 0.32 MILLIGRAM/KILOGRAM
     Route: 030
  2. DIPHENHYDRAMINE [Suspect]
     Active Substance: DIPHENHYDRAMINE
     Indication: Anaesthetic premedication
     Dosage: 0.1 MILLIGRAM/KILOGRAM
     Route: 030
  3. KETAMINE [Suspect]
     Active Substance: KETAMINE
     Indication: Anaesthetic premedication
     Dosage: 1 MILLIGRAM/KILOGRAM
     Route: 030
  4. SEVOFLURANE [Suspect]
     Active Substance: SEVOFLURANE
     Indication: Induction of anaesthesia
     Dosage: BOLUS ADMINISTRATION OF MIXTURE IN OXYGEN OVER 3 MIN THROUGH A MASK
     Route: 007
  5. SEVOFLURANE [Suspect]
     Active Substance: SEVOFLURANE
     Indication: Maintenance of anaesthesia
     Dosage: MAINTAINED THROUGHOUT SURGERY WITH MIXTURE IN OXYGEN THROUGH AN ENDOTRACHEAL TUBE
     Route: 007
  6. ROCURONIUM BROMIDE [Suspect]
     Active Substance: ROCURONIUM BROMIDE
     Indication: Neuromuscular blockade
     Dosage: 0.42 MILLIGRAM/KILOGRAM
     Route: 065
  7. FENTANYL [Suspect]
     Active Substance: FENTANYL
     Indication: Perioperative analgesia
     Dosage: 3.1 MICROGRAM/KILOGRAM (0.005 %)
     Route: 065

REACTIONS (3)
  - Sinus node dysfunction [None]
  - Seizure [Recovered/Resolved]
  - Cardiac arrest [Recovered/Resolved]
